FAERS Safety Report 8806732 (Version 1)
Quarter: 2012Q4

REPORT INFORMATION
  Report Type: 
  Country: DE (occurrence: DE)
  Receive Date: 20120925
  Receipt Date: 20120925
  Transmission Date: 20130627
  Serious: Yes (Hospitalization)
  Sender: FDA-Public Use
  Company Number: GXKR2012DE003024

PATIENT
  Age: 57 Year
  Sex: Male
  Weight: 74 kg

DRUGS (1)
  1. METHOTREXATE [Suspect]
     Indication: POLYARTHRITIS
     Dosage: 15mg/day
     Route: 058
     Dates: start: 201104, end: 201204

REACTIONS (3)
  - Weight decreased [Not Recovered/Not Resolved]
  - Diarrhoea [Not Recovered/Not Resolved]
  - General physical health deterioration [Not Recovered/Not Resolved]
